FAERS Safety Report 5807503-3 (Version None)
Quarter: 2008Q3

REPORT INFORMATION
  Report Type: 
  Country: None (occurrence: None)
  Receive Date: 20080711
  Receipt Date: 20080707
  Transmission Date: 20090109
  Serious: Yes (Life-Threatening, Other)
  Sender: FDA-Public Use
  Company Number: PHHY2008CA13321

PATIENT
  Sex: Female

DRUGS (10)
  1. RASILEZ [Suspect]
     Indication: HYPERTENSION
     Dosage: 150 MG, UNK
     Route: 048
     Dates: start: 20080612
  2. RASILEZ [Suspect]
     Dosage: 300 MG, UNK
     Route: 048
     Dates: start: 20080705
  3. EVISTA [Concomitant]
     Dosage: 1 DF, UNK
  4. PARIET [Concomitant]
     Dosage: 20 MG, UNK
  5. ASAPHEN [Concomitant]
  6. MONOCOR [Concomitant]
  7. TRIFLUOPERAZINE [Concomitant]
  8. OXAZEPAM [Concomitant]
  9. PMS PROCYCLIDINE [Concomitant]
     Dosage: 2.5 MG, UNK
  10. NOVOSEMIDE [Concomitant]

REACTIONS (2)
  - CHOKING [None]
  - OROPHARYNGEAL PAIN [None]
